FAERS Safety Report 17193907 (Version 1)
Quarter: 2019Q4

REPORT INFORMATION
  Report Type: Spontaneous
  Country: CO (occurrence: CO)
  Receive Date: 20191223
  Receipt Date: 20191223
  Transmission Date: 20200122
  Serious: Yes (Hospitalization, Other)
  Sender: FDA-Public Use
  Company Number: CO-BIOMARINAP-CO-2019-127644

PATIENT
  Age: 34 Year
  Sex: Male
  Weight: 42 kg

DRUGS (1)
  1. VIMIZIM [Suspect]
     Active Substance: ELOSULFASE ALFA
     Indication: MUCOPOLYSACCHARIDOSIS IV
     Dosage: 84 MILLIGRAM, QW
     Route: 042
     Dates: start: 20180208

REACTIONS (7)
  - Laryngeal discomfort [Unknown]
  - Dyspnoea [Unknown]
  - Cyanosis [Unknown]
  - Aspiration [Unknown]
  - Cyanosis central [Unknown]
  - Bronchospasm [Unknown]
  - Nausea [Unknown]

NARRATIVE: CASE EVENT DATE: 20191219
